FAERS Safety Report 6697077-X (Version None)
Quarter: 2010Q2

REPORT INFORMATION
  Report Type: 
  Country: None (occurrence: None)
  Receive Date: 20100426
  Receipt Date: 20100415
  Transmission Date: 20101027
  Serious: Yes (Hospitalization)
  Sender: FDA-Public Use
  Company Number: JP-JNJFOC-20100401879

PATIENT
  Sex: Female

DRUGS (2)
  1. CRAVIT [Suspect]
     Indication: INFECTION PROPHYLAXIS
     Route: 048
     Dates: start: 20100204, end: 20100210
  2. CEFMETAZOLE [Concomitant]
     Route: 065

REACTIONS (4)
  - BLOOD LACTATE DEHYDROGENASE INCREASED [None]
  - DECREASED APPETITE [None]
  - HEPATIC FUNCTION ABNORMAL [None]
  - PYREXIA [None]
